FAERS Safety Report 5870176-8 (Version None)
Quarter: 2008Q3

REPORT INFORMATION
  Report Type: 
  Country: None (occurrence: None)
  Receive Date: 20080904
  Receipt Date: 20080822
  Transmission Date: 20090109
  Serious: Yes (Other)
  Sender: FDA-Public Use
  Company Number: PL-PFIZER INC-2008071403

PATIENT
  Age: 54 Year
  Sex: Female

DRUGS (1)
  1. ZELDOX (CAPSULES) [Suspect]
     Route: 048
     Dates: start: 20080701, end: 20080801

REACTIONS (3)
  - ANXIETY [None]
  - GENITAL HAEMORRHAGE [None]
  - HYPERHIDROSIS [None]
